FAERS Safety Report 5099186-8 (Version None)
Quarter: 2006Q3

REPORT INFORMATION
  Report Type: 
  Country: None (occurrence: None)
  Receive Date: 20060728
  Receipt Date: 20060530
  Transmission Date: 20061208
  Serious: No
  Sender: FDA-Public Use
  Company Number: COT_0547_2006

PATIENT
  Age: 70 Year
  Sex: Male
  Weight: 85.2762 kg

DRUGS (9)
  1. VENTAVIS [Suspect]
     Indication: PULMONARY HYPERTENSION
     Dosage: 5 MCG 6XD IH
     Route: 055
     Dates: start: 20060525
  2. LASIX [Concomitant]
  3. ZYRTEC [Concomitant]
  4. LIPITOR [Concomitant]
  5. PLAVIX [Concomitant]
  6. LOPRESSOR [Concomitant]
  7. XANAX [Concomitant]
  8. XOPENEX [Concomitant]
  9. OSTEOBIOFLEX [Concomitant]

REACTIONS (2)
  - COUGH [None]
  - DYSPHONIA [None]
